FAERS Safety Report 5608115-7 (Version None)
Quarter: 2008Q1

REPORT INFORMATION
  Report Type: 
  Country: None (occurrence: None)
  Receive Date: 20080130
  Receipt Date: 20080118
  Transmission Date: 20080703
  Serious: Yes (Other)
  Sender: FDA-Public Use
  Company Number: AR-ROCHE-542146

PATIENT
  Sex: Female

DRUGS (1)
  1. XELODA [Suspect]
     Indication: BREAST CANCER
     Route: 048
     Dates: start: 20070827

REACTIONS (8)
  - AMENORRHOEA [None]
  - ASPHYXIA [None]
  - DYSMENORRHOEA [None]
  - LOWER EXTREMITY MASS [None]
  - PAIN IN EXTREMITY [None]
  - RASH MACULAR [None]
  - TACHYCARDIA [None]
  - VENOUS THROMBOSIS [None]
